FAERS Safety Report 7061756-5 (Version None)
Quarter: 2010Q4

REPORT INFORMATION
  Report Type: 
  Country: None (occurrence: None)
  Receive Date: 20101026
  Receipt Date: 20101020
  Transmission Date: 20110411
  Serious: Yes (Hospitalization)
  Sender: FDA-Public Use
  Company Number: DE-GENZYME-THYM-1001873

PATIENT
  Sex: Female
  Weight: 101 kg

DRUGS (4)
  1. THYMOGLOBULIN [Suspect]
     Indication: PROPHYLAXIS AGAINST TRANSPLANT REJECTION
     Dosage: UNK
     Route: 042
     Dates: start: 20100615
  2. TACROLIMUS [Concomitant]
     Indication: IMMUNOSUPPRESSION
     Dosage: 16 MG, QD
     Route: 048
     Dates: start: 20100615
  3. CELL CEPT [Concomitant]
     Indication: IMMUNOSUPPRESSION
     Dosage: 1000 MG, QD
     Route: 048
     Dates: start: 20100615
  4. PREDNISOLONE [Concomitant]
     Indication: IMMUNOSUPPRESSION
     Dosage: 25 MG, UNK
     Route: 048
     Dates: start: 20100615

REACTIONS (2)
  - BLOOD CREATININE INCREASED [None]
  - URINARY TRACT INFECTION [None]
